FAERS Safety Report 14166090 (Version 4)
Quarter: 2018Q4

REPORT INFORMATION
  Report Type: Spontaneous
  Country: US (occurrence: US)
  Receive Date: 20171107
  Receipt Date: 20181008
  Transmission Date: 20190204
  Serious: No
  Sender: FDA-Public Use
  Company Number: US-ASTRAZENECA-2014SE70126

PATIENT
  Age: 21508 Day
  Sex: Male
  Weight: 86.2 kg

DRUGS (13)
  1. ACTOS [Concomitant]
     Active Substance: PIOGLITAZONE HYDROCHLORIDE
     Dosage: 15.0MG UNKNOWN
  2. ALTACE [Concomitant]
     Active Substance: RAMIPRIL
  3. LIPITOR [Concomitant]
     Active Substance: ATORVASTATIN CALCIUM
  4. JANUVIA [Concomitant]
     Active Substance: SITAGLIPTIN PHOSPHATE
  5. BYDUREON [Suspect]
     Active Substance: EXENATIDE
     Indication: TYPE 2 DIABETES MELLITUS
     Route: 058
     Dates: end: 201711
  6. TOPROL XL [Concomitant]
     Active Substance: METOPROLOL SUCCINATE
  7. GLIMEPIRIDE. [Concomitant]
     Active Substance: GLIMEPIRIDE
  8. PLAVIX [Concomitant]
     Active Substance: CLOPIDOGREL BISULFATE
     Indication: CARDIAC DISORDER
     Dates: start: 2003
  9. METFORMIN [Concomitant]
     Active Substance: METFORMIN HYDROCHLORIDE
  10. BYDUREON [Suspect]
     Active Substance: EXENATIDE
     Indication: TYPE 2 DIABETES MELLITUS
     Route: 058
  11. ZOCOR [Concomitant]
     Active Substance: SIMVASTATIN
  12. GLYBURIDE. [Concomitant]
     Active Substance: GLYBURIDE
  13. ASPIRIN. [Concomitant]
     Active Substance: ASPIRIN
     Indication: CARDIAC DISORDER
     Dates: start: 2003

REACTIONS (16)
  - Injection site haemorrhage [Unknown]
  - Injection site discharge [Unknown]
  - Respiratory disorder [Unknown]
  - Abdominal pain upper [Unknown]
  - Nausea [Unknown]
  - Pain [Unknown]
  - Bronchitis [Unknown]
  - Injection site nodule [Unknown]
  - Malaise [Unknown]
  - Injection site mass [Not Recovered/Not Resolved]
  - Therapy cessation [Unknown]
  - Weight decreased [Not Recovered/Not Resolved]
  - Respiratory distress [Unknown]
  - Vision blurred [Unknown]
  - Memory impairment [Unknown]
  - Blood glucose increased [Unknown]

NARRATIVE: CASE EVENT DATE: 20171016
